FAERS Safety Report 8244122-6 (Version None)
Quarter: 2012Q1

REPORT INFORMATION
  Report Type: 
  Country: None (occurrence: None)
  Receive Date: 20120329
  Receipt Date: 20120322
  Transmission Date: 20120608
  Serious: Yes (Hospitalization, Other)
  Sender: FDA-Public Use
  Company Number: FR-PFIZER INC-2012074242

PATIENT
  Age: 57 Year
  Sex: Male

DRUGS (6)
  1. TRUVADA [Concomitant]
     Dosage: UNK
     Dates: start: 20110701
  2. RULID [Concomitant]
     Indication: LUNG DISORDER
     Dosage: UNK
  3. LYRICA [Suspect]
     Indication: BACK PAIN
     Dosage: 75 MG, 1X/DAY
     Route: 048
     Dates: start: 20111201, end: 20120111
  4. PREZISTA [Concomitant]
     Dosage: UNK
     Dates: start: 20110701
  5. MARAVIROC [Concomitant]
     Dosage: UNK
     Dates: start: 20110701
  6. NORVIR [Concomitant]
     Dosage: UNK
     Dates: start: 20110701

REACTIONS (4)
  - PROSTATOMEGALY [None]
  - CONSTIPATION [None]
  - BLADDER DISORDER [None]
  - URINARY RETENTION [None]
